FAERS Safety Report 23243596 (Version 1)
Quarter: 2023Q4

REPORT INFORMATION
  Report Type: Report from Study
  Country: ZA (occurrence: None)
  Receive Date: 20231130
  Receipt Date: 20231130
  Transmission Date: 20240110
  Serious: Yes (Death)
  Sender: FDA-Public Use
  Company Number: 2023A269152

PATIENT
  Age: 78 Year
  Sex: Male

DRUGS (8)
  1. BUDESONIDE\FORMOTEROL [Suspect]
     Active Substance: BUDESONIDE\FORMOTEROL
     Indication: Chronic obstructive pulmonary disease
     Dosage: 4.5 UG/INHAL, UNKNOWN, 120 DOSE UNKNOWN
     Route: 055
  2. CARVEDILOL [Concomitant]
     Active Substance: CARVEDILOL
     Indication: Hypertension
     Dosage: 25.0MG UNKNOWN
     Route: 048
  3. TIOTROPIUM BROMIDE [Concomitant]
     Active Substance: TIOTROPIUM BROMIDE
     Indication: Chronic obstructive pulmonary disease
     Dosage: 10.0UG/INHAL UNKNOWN
     Route: 055
  4. MYLAN OXYBUTYNIN CHL [Concomitant]
     Indication: Bladder disorder
     Dosage: 5.0MG UNKNOWN
     Route: 048
  5. HYDROCHLOROTHIAZIDE\VALSARTAN [Concomitant]
     Active Substance: HYDROCHLOROTHIAZIDE\VALSARTAN
     Indication: Hypertension
     Dosage: 12.5MG UNKNOWN
     Route: 048
  6. SPIRACTIN [Concomitant]
     Indication: Hypertension
     Dosage: 25.0MG UNKNOWN
     Route: 048
  7. ATORVASTATIN [Concomitant]
     Active Substance: ATORVASTATIN
     Indication: Blood cholesterol
     Dosage: 10.0MG UNKNOWN
     Route: 048
  8. ALPRAZOLAM [Concomitant]
     Active Substance: ALPRAZOLAM
     Indication: Anxiety
     Dosage: 0.5MG UNKNOWN
     Route: 048

REACTIONS (1)
  - Death [Fatal]
